FAERS Safety Report 7541971-4 (Version None)
Quarter: 2011Q2

REPORT INFORMATION
  Report Type: 
  Country: None (occurrence: None)
  Receive Date: 20110606
  Receipt Date: 20110601
  Transmission Date: 20111010
  Serious: Yes (Death)
  Sender: FDA-Public Use
  Company Number: NGX_00435_2011

PATIENT
  Sex: Female
  Weight: 64 kg

DRUGS (1)
  1. QUTENZA [Suspect]
     Indication: PRODUCT USED FOR UNKNOWN INDICATION
     Dosage: (DF TOPICAL)
     Route: 061

REACTIONS (4)
  - MALAISE [None]
  - VOMITING [None]
  - PNEUMONIA [None]
  - OESOPHAGEAL RUPTURE [None]
